FAERS Safety Report 20749486 (Version 3)
Quarter: 2022Q2

REPORT INFORMATION
  Report Type: Spontaneous
  Country: HT (occurrence: HT)
  Receive Date: 20220426
  Receipt Date: 20220607
  Transmission Date: 20220721
  Serious: Yes (Death)
  Sender: FDA-Public Use
  Company Number: HT-NOVARTISPH-NVSC2022HT095747

PATIENT
  Age: 61 Year
  Sex: Female

DRUGS (1)
  1. GLIVEC [Suspect]
     Active Substance: IMATINIB MESYLATE
     Indication: Chronic myeloid leukaemia
     Dosage: 400 MG, QD
     Route: 065
     Dates: start: 20210922

REACTIONS (5)
  - Death [Fatal]
  - Waist circumference increased [Unknown]
  - Generalised oedema [Unknown]
  - Oedema peripheral [Unknown]
  - Face oedema [Unknown]

NARRATIVE: CASE EVENT DATE: 20220117
